FAERS Safety Report 13151726 (Version 1)
Quarter: 2017Q1

REPORT INFORMATION
  Report Type: Report from Study
  Country: US (occurrence: US)
  Receive Date: 20170125
  Receipt Date: 20170125
  Transmission Date: 20170428
  Serious: Yes (Hospitalization)
  Sender: FDA-Public Use
  Company Number: US-JNJFOC-20170105394

PATIENT
  Age: 74 Year
  Sex: Male
  Weight: 66 kg

DRUGS (2)
  1. IBRUTINIB [Suspect]
     Active Substance: IBRUTINIB
     Indication: LYMPHOMA
     Route: 048
     Dates: start: 20161220, end: 20170104
  2. BUPARLISIB [Suspect]
     Active Substance: BUPARLISIB HYDROCHLORIDE
     Indication: LYMPHOMA
     Route: 048
     Dates: start: 20161220, end: 20170103

REACTIONS (1)
  - Cerebral ischaemia [Recovered/Resolved]

NARRATIVE: CASE EVENT DATE: 20170104
